FAERS Safety Report 14811424 (Version 2)
Quarter: 2018Q3

REPORT INFORMATION
  Report Type: Report from Study
  Country: US (occurrence: US)
  Receive Date: 20180425
  Receipt Date: 20180720
  Transmission Date: 20181010
  Serious: No
  Sender: FDA-Public Use
  Company Number: US-AMGEN-USASL2018041227

PATIENT
  Age: 65 Year
  Sex: Male

DRUGS (1)
  1. REPATHA [Suspect]
     Active Substance: EVOLOCUMAB
     Indication: THROMBOTIC CEREBRAL INFARCTION
     Dosage: 140 MG, Q2WK
     Route: 058

REACTIONS (2)
  - Dry mouth [Unknown]
  - Fluid retention [Unknown]
